FAERS Safety Report 6543213-5 (Version None)
Quarter: 2010Q1

REPORT INFORMATION
  Report Type: 
  Country: None (occurrence: None)
  Receive Date: 20100120
  Receipt Date: 20100107
  Transmission Date: 20100710
  Serious: Yes (Other)
  Sender: FDA-Public Use
  Company Number: US-PFIZER INC-2010003248

PATIENT
  Sex: Female

DRUGS (1)
  1. XANAX XR [Suspect]

REACTIONS (2)
  - DYSPNOEA [None]
  - HYPERSENSITIVITY [None]
